FAERS Safety Report 24593338 (Version 1)
Quarter: 2024Q4

REPORT INFORMATION
  Report Type: Spontaneous
  Country: US (occurrence: US)
  Receive Date: 20241108
  Receipt Date: 20241108
  Transmission Date: 20250115
  Serious: Yes (Hospitalization)
  Sender: MYLAN
  Company Number: US-MYLANLABS-2024M1099729

PATIENT
  Age: 60 Year
  Sex: Female

DRUGS (3)
  1. FUROSEMIDE [Suspect]
     Active Substance: FUROSEMIDE
     Indication: Cardiac failure congestive
     Dosage: UNK, INFUSION
     Route: 042
  2. MILRINONE [Suspect]
     Active Substance: MILRINONE
     Indication: Cardiac failure congestive
     Dosage: UNK
     Route: 065
  3. ETHACRYNATE SODIUM [Suspect]
     Active Substance: ETHACRYNATE SODIUM
     Indication: Cardiac failure congestive
     Dosage: UNK
     Route: 065

REACTIONS (2)
  - Drug ineffective [Unknown]
  - Hypersensitivity [Recovered/Resolved]
